FAERS Safety Report 14979272 (Version 1)
Quarter: 2018Q2

REPORT INFORMATION
  Report Type: Spontaneous
  Country: US (occurrence: US)
  Receive Date: 20180606
  Receipt Date: 20180606
  Transmission Date: 20180711
  Serious: Yes (Hospitalization)
  Sender: FDA-Public Use
  Company Number: US-UNITED THERAPEUTICS-UNT-2018-007833

PATIENT
  Sex: Male

DRUGS (1)
  1. REMODULIN [Suspect]
     Active Substance: TREPROSTINIL
     Indication: PULMONARY ARTERIAL HYPERTENSION
     Dosage: 0.0334 ?G/KG, CONTINUING
     Route: 058
     Dates: start: 20171227

REACTIONS (3)
  - Pneumonia [Unknown]
  - Renal failure [Unknown]
  - Limb injury [Unknown]

NARRATIVE: CASE EVENT DATE: 20180516
